FAERS Safety Report 15545396 (Version 1)
Quarter: 2018Q4

REPORT INFORMATION
  Report Type: Spontaneous
  Country: US (occurrence: US)
  Receive Date: 20181017
  Receipt Date: 20181017
  Transmission Date: 20190205
  Serious: Yes (Hospitalization)
  Sender: FDA-Public Use
  Company Number: None

PATIENT
  Age: 46 Year
  Sex: Female

DRUGS (2)
  1. DAPTOMYCIN 500 MG VIAL FRESENIUS [Suspect]
     Active Substance: DAPTOMYCIN
     Indication: SKIN ULCER
     Dosage: ?          OTHER FREQUENCY:Q48H;?
     Route: 042
     Dates: start: 20181007, end: 20181012
  2. CEFTAZIDIME 6 GM VIAL SAGENT [Suspect]
     Active Substance: CEFTAZIDIME
     Indication: SKIN ULCER
     Route: 042
     Dates: start: 20181007, end: 20181012

REACTIONS (3)
  - Urticaria [None]
  - Therapy cessation [None]
  - Swelling [None]

NARRATIVE: CASE EVENT DATE: 20181008
